FAERS Safety Report 15203234 (Version 1)
Quarter: 2018Q3

REPORT INFORMATION
  Report Type: Spontaneous
  Country: GB (occurrence: GB)
  Receive Date: 20180726
  Receipt Date: 20180726
  Transmission Date: 20181010
  Serious: Yes (Other)
  Sender: FDA-Public Use
  Company Number: GB-TEVA-2018-GB-930184

PATIENT
  Age: 16 Year
  Sex: Female
  Weight: 94 kg

DRUGS (7)
  1. PHENOXYMETHYLPENICILLIN [Concomitant]
     Active Substance: PENICILLIN V
     Dosage: 8 DOSAGE FORMS DAILY;
     Dates: start: 20180521, end: 20180531
  2. ZEROCREAM [Concomitant]
     Dosage: APPLY
     Dates: start: 20180420, end: 20180518
  3. CETIRIZINE [Concomitant]
     Active Substance: CETIRIZINE HYDROCHLORIDE
     Dosage: TAKE 3?4 A DAY.
     Dates: start: 20180606, end: 20180613
  4. MALATHION. [Concomitant]
     Active Substance: MALATHION
     Dosage: USE AS DIRECTED.
     Dates: start: 20180511, end: 20180608
  5. E45 [Concomitant]
     Active Substance: LANOLIN\LIGHT MINERAL OIL\PARAFFIN
     Dosage: APPLY
     Dates: start: 20180611, end: 20180618
  6. NORETHISTERONE [Concomitant]
     Active Substance: NORETHINDRONE
     Dates: start: 20180625
  7. DESOGESTREL [Suspect]
     Active Substance: DESOGESTREL
     Route: 065
     Dates: start: 20180625

REACTIONS (1)
  - Rash generalised [Recovered/Resolved]

NARRATIVE: CASE EVENT DATE: 20180625
